FAERS Safety Report 6238806-9 (Version None)
Quarter: 2009Q2

REPORT INFORMATION
  Report Type: 
  Country: None (occurrence: None)
  Receive Date: 20090622
  Receipt Date: 20090612
  Transmission Date: 20091009
  Serious: Yes (Death, Other)
  Sender: FDA-Public Use
  Company Number: US-PFIZER INC-2008092192

PATIENT
  Sex: Male
  Weight: 40.816 kg

DRUGS (9)
  1. LIPITOR [Suspect]
     Indication: BLOOD CHOLESTEROL INCREASED
     Dosage: UNK
     Route: 048
     Dates: start: 20041001
  2. LIPITOR [Suspect]
     Indication: CEREBROVASCULAR ACCIDENT
  3. FLOMAX ^CSL^ [Suspect]
     Indication: BENIGN PROSTATIC HYPERPLASIA
     Dosage: 0.4 MG, UNK
     Dates: start: 20050101
  4. METOPROLOL SUCCINATE [Concomitant]
     Dosage: 25 MG, 2X/DAY
  5. KEPPRA [Concomitant]
     Dosage: UNK
  6. PREVACID [Concomitant]
     Dosage: UNK
  7. ENALAPRIL [Concomitant]
     Dosage: UNK
  8. ALBUTEROL [Concomitant]
     Dosage: UNK
  9. COMBIVENT [Concomitant]
     Dosage: UNK

REACTIONS (5)
  - BENIGN PROSTATIC HYPERPLASIA [None]
  - CEREBROVASCULAR ACCIDENT [None]
  - CONVULSION [None]
  - DEATH [None]
  - GASTRIC CANCER [None]
